FAERS Safety Report 22521153 (Version 1)
Quarter: 2023Q2

REPORT INFORMATION
  Report Type: Spontaneous
  Country: ES (occurrence: ES)
  Receive Date: 20230605
  Receipt Date: 20230605
  Transmission Date: 20230722
  Serious: Yes (Other)
  Sender: FDA-Public Use
  Company Number: ES-MYLANLABS-2023M1058251

PATIENT
  Age: 56 Year
  Sex: Female

DRUGS (4)
  1. MOXIFLOXACIN [Suspect]
     Active Substance: MOXIFLOXACIN
     Indication: Neurotrophic keratopathy
     Dosage: UNK
     Route: 065
     Dates: start: 2020
  2. NICERGOLINE [Suspect]
     Active Substance: NICERGOLINE
     Indication: Neurotrophic keratopathy
     Dosage: 10 MILLIGRAM, BID
     Route: 048
     Dates: start: 2020
  3. DOXYCYCLINE [Suspect]
     Active Substance: DOXYCYCLINE
     Indication: Neurotrophic keratopathy
     Dosage: UNK
     Route: 065
     Dates: start: 2020
  4. SODIUM HYALURONATE [Concomitant]
     Active Substance: HYALURONATE SODIUM
     Indication: Eye lubrication therapy
     Dosage: UNK
     Route: 065
     Dates: start: 2020

REACTIONS (2)
  - Drug ineffective for unapproved indication [Unknown]
  - Off label use [Unknown]

NARRATIVE: CASE EVENT DATE: 20200101
